FAERS Safety Report 7488125-8 (Version None)
Quarter: 2011Q2

REPORT INFORMATION
  Report Type: 
  Country: None (occurrence: None)
  Receive Date: 20110518
  Receipt Date: 20110117
  Transmission Date: 20111010
  Serious: Yes (Congenital Anomaly)
  Sender: FDA-Public Use
  Company Number: US-ROCHE-754059

PATIENT
  Weight: 3.2 kg

DRUGS (3)
  1. OSELTAMIVIR [Suspect]
     Dosage: FRM: GASTRIC TUBE: FOR 5 DAYS
     Route: 064
  2. CEFTRIAXONE SODIUM [Suspect]
     Route: 064
  3. AZITHROMYCIN [Concomitant]

REACTIONS (1)
  - HEART BLOCK CONGENITAL [None]
